FAERS Safety Report 9043273 (Version 1)
Quarter: 2013Q1

REPORT INFORMATION
  Report Type: Spontaneous
  Country: US (occurrence: US)
  Receive Date: 20130129
  Receipt Date: 20130129
  Transmission Date: 20140127
  Serious: No
  Sender: FDA-Public Use
  Company Number: US-ABBOTT-12P-163-0914307-00

PATIENT
  Age: 61 None
  Sex: Male
  Weight: 70.37 kg

DRUGS (2)
  1. HUMIRA 40 MG/0.8 ML PEN [Suspect]
     Indication: PSORIASIS
     Route: 058
     Dates: start: 20090415
  2. STEROID CREAM [Concomitant]
     Indication: PSORIASIS

REACTIONS (4)
  - Psoriasis [Recovering/Resolving]
  - Psoriasis [Recovering/Resolving]
  - Incorrect storage of drug [Unknown]
  - Incorrect storage of drug [Unknown]
